FAERS Safety Report 9511269 (Version 1)
Quarter: 2013Q1

REPORT INFORMATION
  Report Type: Spontaneous
  Country: US (occurrence: None)
  Receive Date: 20130305
  Receipt Date: 20130305
  Transmission Date: 20140127
  Serious: Yes (Hospitalization)
  Sender: FDA-Public Use
  Company Number: 163-21880-12022679

PATIENT
  Age: 76 Year
  Sex: Female

DRUGS (1)
  1. REVLIMID [Suspect]
     Indication: PLASMA CELL MYELOMA
     Dosage: 25 MG, D-1 TO D-21, PO
     Route: 048
     Dates: start: 201101

REACTIONS (3)
  - Pulmonary embolism [None]
  - Nasal congestion [None]
  - Dyspnoea [None]
